FAERS Safety Report 15018785 (Version 1)
Quarter: 2018Q2

REPORT INFORMATION
  Report Type: Spontaneous
  Country: US (occurrence: US)
  Receive Date: 20180616
  Receipt Date: 20180616
  Transmission Date: 20180711
  Serious: Yes (Hospitalization, Other)
  Sender: FDA-Public Use
  Company Number: US-AUROBINDO-AUR-APL-2018-031263

PATIENT
  Age: 91 Year
  Sex: Female

DRUGS (3)
  1. PREDNISONE. [Suspect]
     Active Substance: PREDNISONE
     Indication: TEMPORAL ARTERITIS
     Dosage: 20 MILLIGRAM, ONCE A DAY
     Route: 065
  2. PREDNISONE. [Suspect]
     Active Substance: PREDNISONE
     Indication: PHOTOPHOBIA
     Dosage: TAPERED DOSE, UNK
     Route: 065
  3. PREDNISONE. [Suspect]
     Active Substance: PREDNISONE
     Indication: HEADACHE

REACTIONS (7)
  - Delirium [Unknown]
  - Electrolyte imbalance [Unknown]
  - Skin infection [Unknown]
  - Decreased appetite [Unknown]
  - Urinary tract infection [Unknown]
  - Diabetes mellitus [Recovered/Resolved]
  - Weight decreased [Unknown]
